FAERS Safety Report 9876283 (Version 2)
Quarter: 2014Q1

REPORT INFORMATION
  Report Type: Other
  Country: US (occurrence: US)
  Receive Date: 20140206
  Receipt Date: 20140206
  Transmission Date: 20141002
  Serious: Yes (Other)
  Sender: FDA-Public Use
  Company Number: US-ACORDA-ACO_36077_2013

PATIENT
  Age: 34 Year
  Sex: Female
  Weight: 65.31 kg

DRUGS (9)
  1. AMPYRA [Suspect]
     Indication: GAIT DISTURBANCE
     Dosage: 10 MG, BID
     Route: 048
     Dates: start: 2011
  2. GILENYA [Suspect]
     Indication: PRODUCT USED FOR UNKNOWN INDICATION
     Dosage: 0.5 MG, QD
     Route: 065
     Dates: start: 201304
  3. EFFEXOR [Suspect]
     Indication: PRODUCT USED FOR UNKNOWN INDICATION
     Dosage: 25 MG, UNK
     Route: 048
  4. EFFEXOR [Suspect]
     Dosage: 300 MG, UNK
     Route: 048
     Dates: end: 2013
  5. KLONOPIN [Concomitant]
     Indication: PRODUCT USED FOR UNKNOWN INDICATION
     Dosage: 1 MG, UNK
     Route: 065
  6. PROVIGIL [Concomitant]
     Indication: PRODUCT USED FOR UNKNOWN INDICATION
     Dosage: 100 MG, UNK
     Route: 065
  7. MACRODANTIN [Concomitant]
     Indication: PRODUCT USED FOR UNKNOWN INDICATION
     Dosage: 25 MG, UNK
     Route: 065
  8. ORTHO TRI-CYCLEN [Concomitant]
     Indication: PRODUCT USED FOR UNKNOWN INDICATION
     Route: 065
  9. CELEXA [Concomitant]
     Indication: PRODUCT USED FOR UNKNOWN INDICATION
     Dosage: 10 MG, UNK

REACTIONS (17)
  - Amnesia [Unknown]
  - Photophobia [Unknown]
  - Vision blurred [Unknown]
  - Hypersomnia [Unknown]
  - Weight increased [Unknown]
  - Memory impairment [Unknown]
  - Hypoaesthesia [Unknown]
  - Fatigue [Recovering/Resolving]
  - Pharyngitis streptococcal [Recovering/Resolving]
  - Night sweats [Recovered/Resolved]
  - Malaise [Unknown]
  - Gait disturbance [Unknown]
  - Therapy cessation [Unknown]
  - Headache [Unknown]
  - Nausea [Unknown]
  - Balance disorder [Unknown]
  - Paraesthesia [Unknown]
